FAERS Safety Report 15714171 (Version 1)
Quarter: 2018Q4

REPORT INFORMATION
  Report Type: Spontaneous
  Country: US (occurrence: US)
  Receive Date: 20181129
  Receipt Date: 20181129
  Transmission Date: 20190205
  Serious: No
  Sender: FDA-Public Use
  Company Number: None

PATIENT
  Age: 61 Year
  Sex: Male

DRUGS (1)
  1. TALTZ [Suspect]
     Active Substance: IXEKIZUMAB
     Indication: PSORIASIS
     Dosage: ?          OTHER STRENGTH:80MG/ML/INJ 2XL ML;OTHER FREQUENCY:EVERY 2 WKS AT WKS;?
     Route: 058
     Dates: start: 201810

REACTIONS (1)
  - Fatigue [None]
